FAERS Safety Report 6740129-6 (Version None)
Quarter: 2010Q2

REPORT INFORMATION
  Report Type: 
  Country: None (occurrence: None)
  Receive Date: 20100525
  Receipt Date: 20100518
  Transmission Date: 20101027
  Serious: Yes (Death)
  Sender: FDA-Public Use
  Company Number: BR-PFIZER INC-2010062338

PATIENT
  Age: 86 Year
  Sex: Male

DRUGS (3)
  1. LIPITOR [Suspect]
     Dosage: 20 MG, UNK
     Route: 048
     Dates: start: 20100318, end: 20100408
  2. VASTAREL [Concomitant]
     Dosage: UNK
     Dates: start: 20100318, end: 20100408
  3. PLAVIX [Concomitant]
     Dosage: UNK
     Dates: start: 20100308, end: 20100408

REACTIONS (1)
  - DEATH [None]
